FAERS Safety Report 15991718 (Version 5)
Quarter: 2019Q2

REPORT INFORMATION
  Report Type: Spontaneous
  Country: RO (occurrence: RO)
  Receive Date: 20190221
  Receipt Date: 20190402
  Transmission Date: 20190711
  Serious: Yes (Other)
  Sender: FDA-Public Use
  Company Number: RO-OTSUKA-2019_003641

PATIENT
  Age: 34 Year
  Sex: Female

DRUGS (15)
  1. AMISULPRIDE [Suspect]
     Active Substance: AMISULPRIDE
     Indication: PSYCHOTIC DISORDER
     Dosage: 200 MG, QD
     Route: 065
     Dates: start: 2016, end: 2018
  2. FLUOXETINE [Suspect]
     Active Substance: FLUOXETINE HYDROCHLORIDE
     Indication: PSYCHOTIC DISORDER
     Dosage: 20 MG, QD
     Route: 065
  3. TRIHEXYPHENIDYL [Suspect]
     Active Substance: TRIHEXYPHENIDYL
     Indication: PRODUCT USED FOR UNKNOWN INDICATION
     Dosage: 2 MG, QD
     Route: 065
  4. LORAZEPAM. [Suspect]
     Active Substance: LORAZEPAM
     Indication: PSYCHOTIC SYMPTOM
     Dosage: 2 MG, QD
     Route: 065
  5. RISPERIDONE. [Suspect]
     Active Substance: RISPERIDONE
     Indication: HALLUCINATION
     Dosage: 3 ML, QD
     Route: 065
  6. OLANZAPINE. [Suspect]
     Active Substance: OLANZAPINE
     Indication: PSYCHOTIC DISORDER
     Dosage: 10 MG, QD
     Route: 065
     Dates: end: 2016
  7. OLANZAPINE. [Suspect]
     Active Substance: OLANZAPINE
     Indication: EXTRAPYRAMIDAL DISORDER
     Dosage: 10 MG, QD
     Route: 065
     Dates: start: 2016, end: 2018
  8. AMISULPRIDE [Suspect]
     Active Substance: AMISULPRIDE
     Indication: EXTRAPYRAMIDAL DISORDER
     Dosage: 10 MG, QD
     Route: 065
     Dates: start: 2016, end: 2018
  9. SODIUM VALPROATE [Suspect]
     Active Substance: VALPROATE SODIUM
     Dosage: 1000 MG, QD
     Route: 065
  10. QUETIAPINE. [Suspect]
     Active Substance: QUETIAPINE
     Indication: EXTRAPYRAMIDAL DISORDER
  11. ARIPIPRAZOLE. [Suspect]
     Active Substance: ARIPIPRAZOLE
     Indication: PSYCHOTIC DISORDER
  12. QUETIAPINE. [Suspect]
     Active Substance: QUETIAPINE
     Indication: PSYCHOTIC DISORDER
     Dosage: UNK
     Route: 065
     Dates: start: 2016, end: 2018
  13. TIAPRIDUM [Suspect]
     Active Substance: TIAPRIDE
     Indication: PSYCHOTIC SYMPTOM
     Dosage: 100 MG, QD
     Route: 065
  14. SODIUM VALPROATE [Suspect]
     Active Substance: VALPROATE SODIUM
     Indication: PSYCHOTIC DISORDER
     Dosage: 2000 MG, QD
     Route: 065
  15. ARIPIPRAZOLE. [Suspect]
     Active Substance: ARIPIPRAZOLE
     Indication: EXTRAPYRAMIDAL DISORDER
     Dosage: UNK
     Route: 065
     Dates: start: 2016, end: 2018

REACTIONS (8)
  - Concomitant disease aggravated [Unknown]
  - Hypokinesia [Recovering/Resolving]
  - Drug ineffective for unapproved indication [Unknown]
  - Dystonia [Recovering/Resolving]
  - Extrapyramidal disorder [Unknown]
  - Parkinsonism [Recovering/Resolving]
  - Treatment failure [Unknown]
  - Treatment noncompliance [Unknown]

NARRATIVE: CASE EVENT DATE: 2016
